FAERS Safety Report 7497027-2 (Version None)
Quarter: 2011Q2

REPORT INFORMATION
  Report Type: 
  Country: None (occurrence: None)
  Receive Date: 20110523
  Receipt Date: 20110517
  Transmission Date: 20111010
  Serious: Yes (Death)
  Sender: FDA-Public Use
  Company Number: US-GENZYME-FLUD-1001164

PATIENT
  Age: 31 Year
  Sex: Male

DRUGS (2)
  1. FLUDARA [Suspect]
     Indication: ACUTE MYELOID LEUKAEMIA RECURRENT
     Dosage: UNK
     Route: 065
  2. CYTARABINE [Suspect]
     Indication: ACUTE MYELOID LEUKAEMIA RECURRENT
     Dosage: UNK
     Route: 065

REACTIONS (7)
  - OSTEONECROSIS [None]
  - MOUTH HAEMORRHAGE [None]
  - PULMONARY MASS [None]
  - ERYTHEMA [None]
  - DIPLOPIA [None]
  - ZYGOMYCOSIS [None]
  - EYE SWELLING [None]
